FAERS Safety Report 6045402-5 (Version None)
Quarter: 2009Q1

REPORT INFORMATION
  Report Type: 
  Country: None (occurrence: None)
  Receive Date: 20090121
  Receipt Date: 20090110
  Transmission Date: 20090719
  Serious: Yes (Other)
  Sender: FDA-Public Use
  Company Number: US-PFIZER INC-2008074517

PATIENT
  Sex: Male
  Weight: 90.703 kg

DRUGS (10)
  1. LYRICA [Suspect]
     Indication: NEUROPATHY PERIPHERAL
     Dosage: 50 MG, 2X/DAY
     Route: 048
     Dates: start: 20071201
  2. ASPIRIN [Suspect]
     Dosage: 81 MG, 1X/DAY
     Route: 048
  3. CENTRUM [Concomitant]
  4. ZETIA [Concomitant]
     Indication: BLOOD CHOLESTEROL INCREASED
     Dosage: 10 MG, UNK
  5. VITAMIN B-12 [Concomitant]
     Dosage: 1000 UG, UNK
     Route: 030
  6. CIALIS [Concomitant]
     Dosage: 20 MG, AS NEEDED
  7. DHEA [Concomitant]
     Dosage: 50 MG, UNK
  8. CIPRO [Concomitant]
     Dosage: 500 MG, UNK
  9. VITAMIN D [Concomitant]
     Dosage: UNK
  10. SIMVASTATIN [Concomitant]
     Dosage: 10 MG, UNK

REACTIONS (3)
  - DYSURIA [None]
  - HAEMATURIA [None]
  - NEUROPATHY PERIPHERAL [None]
